FAERS Safety Report 23415838 (Version 2)
Quarter: 2024Q1

REPORT INFORMATION
  Report Type: Spontaneous
  Country: JP (occurrence: None)
  Receive Date: 20240118
  Receipt Date: 20240208
  Transmission Date: 20240410
  Serious: Yes (Death, Hospitalization)
  Sender: FDA-Public Use
  Company Number: 2024A013087

PATIENT
  Age: 60 Year
  Sex: Male

DRUGS (16)
  1. IMFINZI [Suspect]
     Active Substance: DURVALUMAB
     Indication: Hepatocellular carcinoma
     Dosage: 1500.0MG UNKNOWN
     Route: 041
     Dates: start: 20231221, end: 20231221
  2. IMJUDO [Suspect]
     Active Substance: TREMELIMUMAB\TREMELIMUMAB-ACTL
     Indication: Hepatocellular carcinoma
     Dosage: 300.0MG UNKNOWN
     Route: 041
  3. EMPAGLIFLOZIN\LINAGLIPTIN [Concomitant]
     Active Substance: EMPAGLIFLOZIN\LINAGLIPTIN
     Route: 048
  4. URSODIOL [Concomitant]
     Active Substance: URSODIOL
  5. AMITIZA [Concomitant]
     Active Substance: LUBIPROSTONE
     Route: 048
  6. LACTITOL [Concomitant]
     Active Substance: LACTITOL
  7. AMINO ACIDS, SOURCE UNSPECIFIED [Concomitant]
     Active Substance: AMINO ACIDS, SOURCE UNSPECIFIED
  8. RIFAXIMIN [Concomitant]
     Active Substance: RIFAXIMIN
  9. MAGNESIUM OXIDE [Concomitant]
     Active Substance: MAGNESIUM OXIDE
  10. NALFURAFINE HYDROCHLORIDE [Concomitant]
     Active Substance: NALFURAFINE HYDROCHLORIDE
  11. LEVOCARNITINE [Concomitant]
     Active Substance: LEVOCARNITINE
  12. CLOPIDOGREL [Concomitant]
     Active Substance: CLOPIDOGREL BISULFATE
  13. VONOPRAZAN FUMARATE [Concomitant]
     Active Substance: VONOPRAZAN FUMARATE
  14. PITAVASTATIN CALCIUM [Concomitant]
     Active Substance: PITAVASTATIN CALCIUM
  15. BISOPROLOL FUMARATE [Concomitant]
     Active Substance: BISOPROLOL FUMARATE
  16. ENTRESTO [Concomitant]
     Active Substance: SACUBITRIL\VALSARTAN

REACTIONS (1)
  - Cardiac failure acute [Fatal]

NARRATIVE: CASE EVENT DATE: 20240115
